FAERS Safety Report 7221126-3 (Version None)
Quarter: 2011Q1

REPORT INFORMATION
  Report Type: 
  Country: None (occurrence: None)
  Receive Date: 20110112
  Receipt Date: 20110105
  Transmission Date: 20110831
  Serious: No
  Sender: FDA-Public Use
  Company Number: US-PFIZER INC-2011003653

PATIENT
  Sex: Female
  Weight: 49.887 kg

DRUGS (2)
  1. ALDACTONE [Suspect]
     Indication: ACNE
     Dosage: 50 MG, 1X/DAY
     Route: 048
     Dates: start: 20100816, end: 20110101
  2. PROGESTERONE [Concomitant]
     Indication: HORMONE LEVEL ABNORMAL
     Dosage: 75 MG, UNK
     Route: 048

REACTIONS (1)
  - ECCHYMOSIS [None]
